FAERS Safety Report 12887700 (Version 1)
Quarter: 2016Q4

REPORT INFORMATION
  Report Type: Spontaneous
  Country: JP (occurrence: JP)
  Receive Date: 20161026
  Receipt Date: 20161026
  Transmission Date: 20170207
  Serious: Yes (Hospitalization)
  Sender: FDA-Public Use
  Company Number: JP-TAKEDA-2015TUS003649

PATIENT
  Age: 65 Year
  Sex: Female
  Weight: 54.75 kg

DRUGS (13)
  1. VICCLOX                            /00587301/ [Suspect]
     Active Substance: ACYCLOVIR SODIUM
     Indication: HERPES VIRUS INFECTION
     Dosage: 200 MG, QD
     Route: 048
     Dates: start: 20141014, end: 20141023
  2. RAMOSETRON HYDROCHLORIDE [Concomitant]
     Active Substance: RAMOSETRON HYDROCHLORIDE
     Indication: PRODUCT USED FOR UNKNOWN INDICATION
     Dosage: 0.3 MG, QD
     Route: 041
     Dates: start: 20141013, end: 20141020
  3. DECADRON [Concomitant]
     Active Substance: DEXAMETHASONE
     Dosage: UNK
     Route: 065
  4. ECARD [Concomitant]
     Active Substance: CANDESARTAN CILEXETIL\HYDROCHLOROTHIAZIDE
     Dosage: UNK
     Route: 048
  5. EVISTA [Concomitant]
     Active Substance: RALOXIFENE HYDROCHLORIDE
     Dosage: UNK
     Route: 048
     Dates: start: 20141008, end: 20141024
  6. MAGLAX [Concomitant]
     Active Substance: MAGNESIUM OXIDE
     Dosage: UNK
     Route: 048
  7. DEXART [Concomitant]
     Active Substance: DEXAMETHASONE SODIUM PHOSPHATE
     Indication: PLASMA CELL MYELOMA
     Dosage: 6.6 MG, 2/WEEK
     Route: 041
     Dates: start: 20141013, end: 20141023
  8. VELCADE [Concomitant]
     Active Substance: BORTEZOMIB
     Indication: PLASMA CELL MYELOMA
     Dosage: 3 MG, 2/WEEK
     Route: 058
     Dates: start: 20141013, end: 20141023
  9. WARKMIN [Concomitant]
     Active Substance: ALFACALCIDOL
     Dosage: UNK
     Route: 048
     Dates: start: 20141008, end: 20141024
  10. NEXIUM [Suspect]
     Active Substance: ESOMEPRAZOLE MAGNESIUM
     Indication: GASTRITIS
     Dosage: 20 MG, QD
     Route: 048
     Dates: start: 20141007, end: 20141023
  11. FEBURIC [Suspect]
     Active Substance: FEBUXOSTAT
     Indication: HYPERURICAEMIA
     Dosage: 20 MG, QD
     Route: 048
     Dates: start: 20141007, end: 20141023
  12. AMLODIPINE [Suspect]
     Active Substance: AMLODIPINE BESYLATE
     Indication: HYPERTENSION
     Dosage: 2.5 MG, QD
     Route: 048
     Dates: start: 20141009
  13. ENDOXAN                            /00021102/ [Concomitant]
     Active Substance: CYCLOPHOSPHAMIDE
     Indication: PLASMA CELL MYELOMA
     Dosage: 740 MG, QD
     Route: 041
     Dates: start: 20141013, end: 20141020

REACTIONS (2)
  - Hepatic function abnormal [Recovering/Resolving]
  - Rash [Recovering/Resolving]

NARRATIVE: CASE EVENT DATE: 20141024
